FAERS Safety Report 6801452-X (Version None)
Quarter: 2010Q2

REPORT INFORMATION
  Report Type: 
  Country: None (occurrence: None)
  Receive Date: 20100629
  Receipt Date: 20100622
  Transmission Date: 20101027
  Serious: Yes (Hospitalization)
  Sender: FDA-Public Use
  Company Number: NL-ROCHE-710868

PATIENT
  Sex: Male

DRUGS (9)
  1. BEVACIZUMAB [Suspect]
     Dosage: DATE OF LAST CYCLE: 25 MAY 2010, CYCLE: 2
     Route: 017
     Dates: start: 20100503
  2. CAPECITABINE [Suspect]
     Dosage: DAILY DOSE: 2X1300MG, CYCLE:2, DATE OF LAST CYCLE: 15 MAY 2010
     Route: 048
     Dates: start: 20100503
  3. OXALIPLATIN [Suspect]
     Dosage: DATE OF LAST CYCLE: 25 MAY 2010, CYCLE:2
     Route: 042
     Dates: start: 20100503
  4. NEXIUM [Concomitant]
     Dosage: DOSE: 1X140MG
  5. AMLODIPINE [Concomitant]
     Dosage: DOSE: 1X10MG
  6. DICLOFENAC SODIUM [Concomitant]
     Dosage: DOSE: 2X100MG
  7. OXYCONTIN [Concomitant]
     Dosage: DOSE: 3X30MG
  8. OXYCODONE HCL [Concomitant]
     Dosage: DOSE: 6X10 MG
  9. ACETAMINOPHEN [Concomitant]
     Dosage: DOSE: 500MG 3X2

REACTIONS (1)
  - INTESTINAL OBSTRUCTION [None]
